FAERS Safety Report 10435389 (Version 4)
Quarter: 2014Q4

REPORT INFORMATION
  Report Type: Spontaneous
  Country: US (occurrence: US)
  Receive Date: 20140908
  Receipt Date: 20141024
  Transmission Date: 20150528
  Serious: Yes (Hospitalization, Other)
  Sender: FDA-Public Use
  Company Number: US-UNITED THERAPEUTICS-UNT-2014-006158

PATIENT
  Age: 55 Year
  Sex: Female
  Weight: 93.42 kg

DRUGS (2)
  1. ADEMPAS [Suspect]
     Active Substance: RIOCIGUAT
     Indication: PRODUCT USED FOR UNKNOWN INDICATION
     Dosage: 2 DOSES, DAILY
  2. REMODULIN [Suspect]
     Active Substance: TREPROSTINIL
     Indication: PULMONARY ARTERIAL HYPERTENSION
     Dosage: 0.099 ?G/KG, CONTINUING
     Route: 041
     Dates: start: 20110420

REACTIONS (9)
  - Headache [Unknown]
  - Nausea [Unknown]
  - Device leakage [Unknown]
  - Gallbladder disorder [Unknown]
  - Hypotension [Unknown]
  - Drug dose omission [Unknown]
  - Dysgeusia [Unknown]
  - Constipation [Unknown]
  - Oedema peripheral [Unknown]

NARRATIVE: CASE EVENT DATE: 2014
